FAERS Safety Report 5218601-X (Version None)
Quarter: 2007Q1

REPORT INFORMATION
  Report Type: 
  Country: None (occurrence: None)
  Receive Date: 20061130
  Receipt Date: 20060822
  Transmission Date: 20070707
  Serious: Yes (Hospitalization)
  Sender: FDA-Public Use
  Company Number: US200606002840

PATIENT
  Sex: Female
  Weight: 72.6 kg

DRUGS (1)
  1. ZYPREXA [Suspect]
     Dates: start: 19990101, end: 20050101

REACTIONS (4)
  - BACK INJURY [None]
  - DIABETES MELLITUS [None]
  - HYPERGLYCAEMIA [None]
  - PAIN [None]
